FAERS Safety Report 19276973 (Version 1)
Quarter: 2021Q2

REPORT INFORMATION
  Report Type: Spontaneous
  Country: FR (occurrence: FR)
  Receive Date: 20210520
  Receipt Date: 20210520
  Transmission Date: 20210717
  Serious: Yes (Hospitalization)
  Sender: FDA-Public Use
  Company Number: FR-AUROBINDO-AUR-APL-2019-049571

PATIENT
  Sex: Male

DRUGS (12)
  1. ZEVALIN [Suspect]
     Active Substance: IBRITUMOMAB TIUXETAN
     Indication: FOLLICULAR LYMPHOMA
     Dosage: 1 MG, SINGLE
     Route: 042
     Dates: start: 20160608, end: 20160608
  2. MABTHERA [Suspect]
     Active Substance: RITUXIMAB
     Indication: B-CELL LYMPHOMA
     Dosage: 500 MG, SINGLE
     Route: 042
     Dates: start: 20160602, end: 20160602
  3. MABTHERA [Suspect]
     Active Substance: RITUXIMAB
     Dosage: 500 MG, SINGLE
     Route: 042
     Dates: start: 20160608, end: 20160608
  4. ETOPOSIDE TEVA [Suspect]
     Active Substance: ETOPOSIDE
     Indication: B-CELL LYMPHOMA
     Dosage: 200 MG, UNK
     Route: 042
     Dates: start: 20160617, end: 20160617
  5. ETOPOSIDE TEVA [Suspect]
     Active Substance: ETOPOSIDE
     Indication: BONE MARROW CONDITIONING REGIMEN
     Dosage: 200 MG, UNK
     Route: 042
     Dates: start: 20160620, end: 20160620
  6. ETOPOSIDE TEVA [Suspect]
     Active Substance: ETOPOSIDE
     Dosage: 400 MILLIGRAM
     Route: 041
     Dates: start: 20160617, end: 20160620
  7. LINEZOLID. [Concomitant]
     Active Substance: LINEZOLID
     Indication: PRODUCT USED FOR UNKNOWN INDICATION
     Dosage: UNK
     Route: 065
  8. MELPHALAN. [Suspect]
     Active Substance: MELPHALAN
     Indication: BONE MARROW CONDITIONING REGIMEN
     Dosage: 280 MG, SINGLE
     Route: 041
     Dates: start: 20160621, end: 20160621
  9. BICNU [Suspect]
     Active Substance: CARMUSTINE
     Indication: B-CELL LYMPHOMA
     Dosage: 600 MILLIGRAM, SINGLE
     Route: 041
     Dates: start: 20160617, end: 20160617
  10. BICNU [Suspect]
     Active Substance: CARMUSTINE
     Indication: BONE MARROW CONDITIONING REGIMEN
  11. CYTARABINE. [Suspect]
     Active Substance: CYTARABINE
     Indication: B-CELL LYMPHOMA
     Dosage: 400 MG, SINGLE
     Route: 042
     Dates: start: 20160617, end: 20160617
  12. CYTARABINE. [Suspect]
     Active Substance: CYTARABINE
     Indication: BONE MARROW CONDITIONING REGIMEN
     Dosage: 400 MG, SINGLE
     Route: 042
     Dates: start: 20160620, end: 20160620

REACTIONS (2)
  - Bone marrow failure [Recovered/Resolved]
  - Staphylococcal skin infection [Recovered/Resolved]

NARRATIVE: CASE EVENT DATE: 20160624
